FAERS Safety Report 8970593 (Version 1)
Quarter: 2012Q4

REPORT INFORMATION
  Report Type: 
  Country: US (occurrence: US)
  Receive Date: 20121218
  Receipt Date: 20121218
  Transmission Date: 20130627
  Serious: No
  Sender: FDA-Public Use
  Company Number: US-BRISTOL-MYERS SQUIBB COMPANY-17063769

PATIENT
  Age: 58 Year
  Sex: Male

DRUGS (1)
  1. ABILIFY [Suspect]
     Indication: DEPRESSION
     Dates: start: 2009

REACTIONS (5)
  - Irritability [Unknown]
  - Restlessness [Unknown]
  - Psychomotor hyperactivity [Unknown]
  - Paranoia [Unknown]
  - Insomnia [Unknown]
